FAERS Safety Report 5101947-3 (Version None)
Quarter: 2006Q3

REPORT INFORMATION
  Report Type: 
  Country: None (occurrence: None)
  Receive Date: 20060907
  Receipt Date: 20060825
  Transmission Date: 20061208
  Serious: Yes (Life-Threatening, Hospitalization, Disabling)
  Sender: FDA-Public Use
  Company Number: 229138

PATIENT
  Age: 86 Year
  Sex: Female

DRUGS (9)
  1. RANIBIZUMAB (RANIBIZUMAB) PWDR + SOLVENT, INJECTION SOLN [Suspect]
     Indication: MACULAR DEGENERATION
     Dosage: INTRAVITREAL
     Route: 050
     Dates: start: 20060615
  2. SYNTHROID [Concomitant]
  3. TARKA [Concomitant]
  4. CARBATROL [Concomitant]
  5. TYLENOL (CAPLET) [Concomitant]
  6. PROTONIX [Concomitant]
  7. LASIX [Concomitant]
  8. AMIODARONE HCL [Concomitant]
  9. FOSAMAX [Concomitant]

REACTIONS (1)
  - GASTROINTESTINAL HAEMORRHAGE [None]
